FAERS Safety Report 23229047 (Version 1)
Quarter: 2023Q4

REPORT INFORMATION
  Report Type: Spontaneous
  Country: US (occurrence: US)
  Receive Date: 20231127
  Receipt Date: 20231127
  Transmission Date: 20240110
  Serious: No
  Sender: FDA-Public Use
  Company Number: US-JNJFOC-20231153398

PATIENT
  Sex: Male

DRUGS (2)
  1. SIMPONI ARIA [Suspect]
     Active Substance: GOLIMUMAB
     Indication: Ankylosing spondylitis
     Dosage: SIMPONI VIAL 12.50 MG/ML
     Route: 041
     Dates: start: 20231114, end: 20231114
  2. SIMPONI ARIA [Suspect]
     Active Substance: GOLIMUMAB
     Route: 041
     Dates: start: 20231114, end: 20231114

REACTIONS (3)
  - Infusion site extravasation [Unknown]
  - Infusion site swelling [Unknown]
  - Nervousness [Unknown]

NARRATIVE: CASE EVENT DATE: 20231114
